FAERS Safety Report 8960586 (Version 3)
Quarter: 2013Q1

REPORT INFORMATION
  Report Type: Spontaneous
  Country: US (occurrence: None)
  Receive Date: 20121130
  Receipt Date: 20130129
  Transmission Date: 20140127
  Serious: Yes (Hospitalization)
  Sender: FDA-Public Use
  Company Number: 2012AP004016

PATIENT
  Age: 38 Year
  Sex: Male

DRUGS (6)
  1. TERBINAFINE HCL [Suspect]
     Indication: BODY TINEA
     Route: 048
  2. ASPIRIN [Concomitant]
  3. LISINOPRIL [Concomitant]
  4. PREDNISONE [Concomitant]
  5. OMEPRAZOLE [Concomitant]
  6. PROGRAF [Concomitant]

REACTIONS (7)
  - Pancreatitis acute [None]
  - Tachycardia [None]
  - Glomerular filtration rate decreased [None]
  - Leukocytosis [None]
  - Creatinine renal clearance decreased [None]
  - Off label use [None]
  - Blood creatinine increased [None]
